FAERS Safety Report 9712654 (Version 2)
Quarter: 2014Q1

REPORT INFORMATION
  Report Type: Spontaneous
  Country: US (occurrence: US)
  Receive Date: 20131126
  Receipt Date: 20140101
  Transmission Date: 20141002
  Serious: Yes (Other)
  Sender: FDA-Public Use
  Company Number: PHEH2013US024692

PATIENT
  Sex: Female

DRUGS (8)
  1. DIOVAN HCT [Suspect]
     Dosage: (160 MG VALS AND 12.5 MG HYDR)
  2. DIOVAN HCT [Suspect]
     Dosage: UNK UKN, UNK
  3. HYDROCHLOROTHIAZIDE,VALSARTAN [Suspect]
  4. METFORMIN [Concomitant]
  5. ONGLYZA [Concomitant]
  6. GLYBURIDE [Concomitant]
  7. PRAVASTATIN [Concomitant]
  8. LEVOTHROID [Concomitant]

REACTIONS (2)
  - Diabetes mellitus [Unknown]
  - Pruritus generalised [Unknown]
